FAERS Safety Report 20922868 (Version 1)
Quarter: 2022Q2

REPORT INFORMATION
  Report Type: Spontaneous
  Country: US (occurrence: US)
  Receive Date: 20220607
  Receipt Date: 20220607
  Transmission Date: 20220721
  Serious: No
  Sender: FDA-Public Use
  Company Number: US-HETERO-HET2022US01239

PATIENT
  Sex: Female
  Weight: 73 kg

DRUGS (4)
  1. LOSARTAN [Suspect]
     Active Substance: LOSARTAN
     Indication: Blood pressure abnormal
     Dosage: 100 MG, ONCE IN A DAY
     Route: 048
  2. SERTRALINE [Concomitant]
     Active Substance: SERTRALINE HYDROCHLORIDE
     Indication: Product used for unknown indication
     Dosage: 100 MG, ONCE A DAY
     Route: 065
  3. LOVASTATIN [Concomitant]
     Active Substance: LOVASTATIN
     Indication: Product used for unknown indication
     Dosage: 10 MG, ONCE A DAY
     Route: 065
  4. METFORMIN [Concomitant]
     Active Substance: METFORMIN HYDROCHLORIDE
     Indication: Product used for unknown indication
     Dosage: ONCE IN A DAY
     Route: 065

REACTIONS (4)
  - Muscle spasms [Recovered/Resolved]
  - Muscle disorder [Recovered/Resolved]
  - Somnolence [Recovered/Resolved]
  - Myalgia [Recovered/Resolved]
